FAERS Safety Report 9397848 (Version 4)
Quarter: 2014Q1

REPORT INFORMATION
  Report Type: Spontaneous
  Country: JP (occurrence: JP)
  Receive Date: 20130712
  Receipt Date: 20140124
  Transmission Date: 20141002
  Serious: Yes (Other)
  Sender: FDA-Public Use
  Company Number: JP-AMGEN-JPNSP2013048629

PATIENT
  Age: 72 Year
  Sex: Male
  Weight: 50 kg

DRUGS (6)
  1. RANMARK [Suspect]
     Indication: METASTASES TO BONE
     Route: 058
     Dates: start: 20121001, end: 20130607
  2. CELECOXIB [Concomitant]
     Route: 048
     Dates: start: 201209
  3. ASPARA-CA [Concomitant]
     Route: 048
  4. ONEALFA [Concomitant]
     Route: 048
  5. LIVALO [Concomitant]
     Route: 048
  6. MAGLAX [Concomitant]
     Route: 048

REACTIONS (1)
  - Osteonecrosis of jaw [Recovered/Resolved]
